FAERS Safety Report 25412207 (Version 1)
Quarter: 2025Q2

REPORT INFORMATION
  Report Type: Report from Study
  Country: US (occurrence: US)
  Receive Date: 20250609
  Receipt Date: 20250609
  Transmission Date: 20250717
  Serious: Yes (Other)
  Sender: MALLINCKRODT
  Company Number: US-MALLINCKRODT-MNK202501276

PATIENT
  Sex: Female

DRUGS (3)
  1. CORTICOTROPIN [Suspect]
     Active Substance: CORTICOTROPIN
     Indication: Systemic lupus erythematosus
  2. AJOVY [Concomitant]
     Active Substance: FREMANEZUMAB-VFRM
  3. B12 [Concomitant]

REACTIONS (5)
  - Ophthalmoplegia [Unknown]
  - Polymyositis [Unknown]
  - Eye irritation [Unknown]
  - Arthralgia [Unknown]
  - Pain in extremity [Unknown]
